FAERS Safety Report 22122059 (Version 1)
Quarter: 2023Q1

REPORT INFORMATION
  Report Type: Spontaneous
  Country: RU (occurrence: RU)
  Receive Date: 20230321
  Receipt Date: 20230321
  Transmission Date: 20230418
  Serious: Yes (Hospitalization, Other)
  Sender: FDA-Public Use
  Company Number: RU-Gedeon Richter Plc.-2023_GR_002241

PATIENT
  Sex: Female

DRUGS (4)
  1. CARIPRAZINE HYDROCHLORIDE [Suspect]
     Active Substance: CARIPRAZINE HYDROCHLORIDE
     Indication: Intentional product use issue
     Dosage: 10 CAPSULES 1.5 MG
     Route: 048
     Dates: start: 20230222, end: 20230222
  2. TRAZODONE HYDROCHLORIDE [Suspect]
     Active Substance: TRAZODONE HYDROCHLORIDE
     Indication: Intentional product use issue
     Dosage: 10 TABLETS OF 150 MG
     Route: 048
     Dates: start: 20230222, end: 20230222
  3. SERTRALINE HYDROCHLORIDE [Suspect]
     Active Substance: SERTRALINE HYDROCHLORIDE
     Indication: Intentional product use issue
     Dosage: 5 TABLETS OF 100 MG
     Route: 048
     Dates: start: 20230222, end: 20230222
  4. LAMOTRIGINE [Suspect]
     Active Substance: LAMOTRIGINE
     Indication: Intentional product use issue
     Dosage: 10 TABLETS OF 100 MG
     Route: 048
     Dates: start: 20230222, end: 20230222

REACTIONS (5)
  - Suicide attempt [Recovered/Resolved]
  - Intentional overdose [Unknown]
  - Intentional product use issue [Unknown]
  - Asthenia [Recovering/Resolving]
  - Product use issue [Unknown]

NARRATIVE: CASE EVENT DATE: 20230222
